FAERS Safety Report 6632139-4 (Version None)
Quarter: 2010Q1

REPORT INFORMATION
  Report Type: 
  Country: None (occurrence: None)
  Receive Date: 20100312
  Receipt Date: 20100305
  Transmission Date: 20100710
  Serious: Yes (Death, Other)
  Sender: FDA-Public Use
  Company Number: JP-SANOFI-AVENTIS-2010SA013053

PATIENT
  Age: 86 Year
  Sex: Male
  Weight: 60 kg

DRUGS (11)
  1. PLAVIX [Suspect]
     Indication: ACUTE MYOCARDIAL INFARCTION
     Route: 048
     Dates: start: 20091207, end: 20091207
  2. PLAVIX [Suspect]
     Route: 048
     Dates: start: 20091208, end: 20100110
  3. ASPIRIN [Concomitant]
     Indication: ACUTE MYOCARDIAL INFARCTION
     Route: 048
     Dates: start: 20091207, end: 20100110
  4. HEPARIN [Concomitant]
     Indication: ACUTE MYOCARDIAL INFARCTION
     Dosage: DOSE:10000 UNIT(S)
     Route: 042
     Dates: start: 20091207, end: 20100110
  5. CRESTOR [Concomitant]
     Route: 048
     Dates: start: 20091226, end: 20100110
  6. ALDACTONE [Concomitant]
     Indication: HYPERTENSION
     Route: 048
     Dates: start: 20091223, end: 20100110
  7. DOBUTAMINE [Concomitant]
     Indication: ACUTE MYOCARDIAL INFARCTION
     Dates: start: 20091207, end: 20091222
  8. INOVAN [Concomitant]
     Indication: ACUTE MYOCARDIAL INFARCTION
     Route: 051
     Dates: start: 20091207, end: 20100126
  9. LASIX [Concomitant]
     Indication: ACUTE MYOCARDIAL INFARCTION
     Dates: start: 20091207, end: 20091221
  10. ANCARON [Concomitant]
     Route: 051
     Dates: start: 20091209, end: 20091214
  11. TAKEPRON [Concomitant]
     Indication: PEPTIC ULCER
     Route: 048
     Dates: start: 20091207, end: 20100110

REACTIONS (2)
  - ACUTE MYOCARDIAL INFARCTION [None]
  - GASTROINTESTINAL NECROSIS [None]
